FAERS Safety Report 5535421-7 (Version None)
Quarter: 2007Q4

REPORT INFORMATION
  Report Type: 
  Country: None (occurrence: None)
  Receive Date: 20071206
  Receipt Date: 20071129
  Transmission Date: 20080405
  Serious: Yes (Hospitalization)
  Sender: FDA-Public Use
  Company Number: FR-BRISTOL-MYERS SQUIBB COMPANY-13999669

PATIENT
  Age: 61 Year
  Sex: Female

DRUGS (1)
  1. CETUXIMAB [Suspect]
     Indication: HYPOPHARYNGEAL CANCER
     Route: 042
     Dates: start: 20071011

REACTIONS (1)
  - DYSPHAGIA [None]
